FAERS Safety Report 12162390 (Version 1)
Quarter: 2016Q1

REPORT INFORMATION
  Report Type: Spontaneous
  Country: US (occurrence: None)
  Receive Date: 20160308
  Receipt Date: 20160308
  Transmission Date: 20160526
  Serious: Yes (Hospitalization, Disabling)
  Sender: FDA-Public Use
  Company Number: None

PATIENT
  Age: 56 Year
  Sex: Female
  Weight: 56.25 kg

DRUGS (10)
  1. KEPPRA [Concomitant]
     Active Substance: LEVETIRACETAM
  2. FISH OIL [Concomitant]
     Active Substance: FISH OIL
  3. ASPIRIN. [Concomitant]
     Active Substance: ASPIRIN
  4. KLONIPIN [Concomitant]
     Active Substance: CLONAZEPAM
  5. OXYCODONE [Concomitant]
     Active Substance: OXYCODONE
  6. MULTIVITAMIN [Concomitant]
     Active Substance: VITAMINS
  7. PERCACET [Concomitant]
  8. BACLOFIN [Concomitant]
  9. TRAZODONE [Concomitant]
     Active Substance: TRAZODONE HYDROCHLORIDE
  10. TECFIDERA [Suspect]
     Active Substance: DIMETHYL FUMARATE
     Indication: MULTIPLE SCLEROSIS
     Dosage: 1 PILL 2X DAILY BY MOUTH
     Route: 048
     Dates: start: 20130906, end: 20131231

REACTIONS (5)
  - Fall [None]
  - Sneezing [None]
  - Cough [None]
  - Musculoskeletal disorder [None]
  - Vomiting [None]

NARRATIVE: CASE EVENT DATE: 20140120
